FAERS Safety Report 24392142 (Version 1)
Quarter: 2024Q4

REPORT INFORMATION
  Report Type: Spontaneous
  Country: US (occurrence: None)
  Receive Date: 20241002
  Receipt Date: 20241002
  Transmission Date: 20250115
  Serious: Yes (Life-Threatening, Hospitalization, Disabling, Other)
  Sender: Public
  Company Number: None

PATIENT
  Age: 32 Year
  Sex: Female
  Weight: 112.5 kg

DRUGS (8)
  1. EFFEXOR [Suspect]
     Active Substance: VENLAFAXINE HYDROCHLORIDE
     Indication: Major depression
     Dosage: OTHER QUANTITY : 2 CAPSULE(S);?
     Route: 048
     Dates: start: 20200203, end: 20241002
  2. EFFEXOR [Suspect]
     Active Substance: VENLAFAXINE HYDROCHLORIDE
     Indication: Anxiety
  3. HYDROXYZINE PAMOATE [Concomitant]
     Active Substance: HYDROXYZINE PAMOATE
  4. CYCLOBENZAPRINE [Concomitant]
  5. TOPIRAMATE [Concomitant]
     Active Substance: TOPIRAMATE
  6. MUCINEX [Concomitant]
  7. Ibuprofix [Concomitant]
  8. VITAMIN D2 [Concomitant]
     Active Substance: ERGOCALCIFEROL

REACTIONS (20)
  - Anger [None]
  - Stress [None]
  - Vomiting [None]
  - Weight decreased [None]
  - Therapy cessation [None]
  - Economic problem [None]
  - Chills [None]
  - Tremor [None]
  - Pyrexia [None]
  - Agitation [None]
  - Clonus [None]
  - Hyperreflexia [None]
  - Tachycardia [None]
  - Hyperhidrosis [None]
  - Night sweats [None]
  - Alopecia [None]
  - Suicidal behaviour [None]
  - Impaired work ability [None]
  - Loss of personal independence in daily activities [None]
  - Migraine [None]

NARRATIVE: CASE EVENT DATE: 20240916
